FAERS Safety Report 5238570-6 (Version None)
Quarter: 2007Q1

REPORT INFORMATION
  Report Type: 
  Country: None (occurrence: None)
  Receive Date: 20070214
  Receipt Date: 20070214
  Transmission Date: 20070707
  Serious: Yes (Hospitalization)
  Sender: FDA-Public Use
  Company Number: None

PATIENT
  Age: 61 Year
  Sex: Male
  Weight: 103 kg

DRUGS (8)
  1. LISINOPRIL [Suspect]
  2. GUAIFENESIN [Concomitant]
  3. NEFEDIPINE [Concomitant]
  4. HUMULIN N [Concomitant]
  5. GEMFIBROZIL [Concomitant]
  6. NICOTINE [Concomitant]
  7. GLIPIZIDE [Concomitant]
  8. NIACIN (NIASPAN-KOS) [Concomitant]

REACTIONS (1)
  - ANGIOEDEMA [None]
